FAERS Safety Report 21974502 (Version 1)
Quarter: 2023Q1

REPORT INFORMATION
  Report Type: Spontaneous
  Country: GB (occurrence: GB)
  Receive Date: 20230209
  Receipt Date: 20230209
  Transmission Date: 20230417
  Serious: Yes (Other)
  Sender: FDA-Public Use
  Company Number: GB-MHRA-MED-202301141459394580-TGDSH

PATIENT
  Age: 39 Year
  Sex: Female
  Weight: 83 kg

DRUGS (2)
  1. PROPRANOLOL [Suspect]
     Active Substance: PROPRANOLOL HYDROCHLORIDE
     Indication: Migraine
     Dosage: 20 MILLIGRAM DAILY;
     Route: 065
     Dates: start: 20230104, end: 20230112
  2. SPIRONOLACTONE [Suspect]
     Active Substance: SPIRONOLACTONE
     Indication: Migraine
     Dosage: 20 MILLIGRAM DAILY;
     Route: 065
     Dates: start: 20230104, end: 20230112

REACTIONS (6)
  - Urticaria [Unknown]
  - Skin burning sensation [Unknown]
  - Swelling [Unknown]
  - Peripheral coldness [Unknown]
  - Pain in extremity [Unknown]
  - Rash [Recovering/Resolving]

NARRATIVE: CASE EVENT DATE: 20230113
